FAERS Safety Report 7482907-4 (Version None)
Quarter: 2011Q2

REPORT INFORMATION
  Report Type: 
  Country: None (occurrence: None)
  Receive Date: 20110516
  Receipt Date: 20110405
  Transmission Date: 20111010
  Serious: Yes (Other)
  Sender: FDA-Public Use
  Company Number: CR-PFIZER INC-2011102326

PATIENT
  Age: 38 Year
  Sex: Female

DRUGS (3)
  1. CLONAZEPAM [Concomitant]
     Dosage: UNK
     Dates: start: 20080101
  2. ENALAPRIL MALEATE [Concomitant]
     Dosage: 20 MG, UNK
     Route: 048
     Dates: start: 20090329
  3. SERTRALINE HYDROCHLORIDE [Suspect]
     Dosage: 100 MG, 1X/DAY
     Route: 048

REACTIONS (6)
  - HYPERHIDROSIS [None]
  - MYDRIASIS [None]
  - HEADACHE [None]
  - TACHYCARDIA [None]
  - CRYING [None]
  - DYSPNOEA [None]
